FAERS Safety Report 14331302 (Version 4)
Quarter: 2018Q1

REPORT INFORMATION
  Report Type: Report from Study
  Country: CA (occurrence: CA)
  Receive Date: 20171228
  Receipt Date: 20180327
  Transmission Date: 20180509
  Serious: Yes (Life-Threatening, Other)
  Sender: FDA-Public Use
  Company Number: CA-ROCHE-2043672

PATIENT
  Age: 66 Year
  Sex: Male

DRUGS (16)
  1. CELLCEPT [Suspect]
     Active Substance: MYCOPHENOLATE MOFETIL\MYCOPHENOLATE MOFETIL HYDROCHLORIDE
     Indication: PRODUCT USED FOR UNKNOWN INDICATION
     Route: 065
     Dates: start: 20150801, end: 20151118
  2. PREDNISONE. [Suspect]
     Active Substance: PREDNISONE
     Indication: PRODUCT USED FOR UNKNOWN INDICATION
     Route: 065
     Dates: start: 20150701, end: 20151001
  3. HUMIRA [Suspect]
     Active Substance: ADALIMUMAB
     Indication: PRODUCT USED FOR UNKNOWN INDICATION
     Route: 065
     Dates: start: 20160122, end: 20161201
  4. DIPHENHYDRAMINE HCL [Concomitant]
     Active Substance: DIPHENHYDRAMINE HYDROCHLORIDE
     Route: 048
  5. TYLENOL [Concomitant]
     Active Substance: ACETAMINOPHEN
     Route: 065
     Dates: start: 20180129
  6. COVERSYL [Concomitant]
     Active Substance: PERINDOPRIL
  7. RITUXAN [Suspect]
     Active Substance: RITUXIMAB
     Indication: RHEUMATOID ARTHRITIS
     Route: 042
     Dates: start: 20180129, end: 20180129
  8. RITUXAN [Suspect]
     Active Substance: RITUXIMAB
     Indication: CHORIORETINOPATHY
  9. CYCLOSPORIN A [Suspect]
     Active Substance: CYCLOSPORINE
     Indication: PRODUCT USED FOR UNKNOWN INDICATION
     Route: 065
     Dates: start: 20151010, end: 20151101
  10. LOSAK [Concomitant]
  11. METHOTREXATE. [Suspect]
     Active Substance: METHOTREXATE
     Indication: PRODUCT USED FOR UNKNOWN INDICATION
     Route: 065
  12. CRESTOR [Concomitant]
     Active Substance: ROSUVASTATIN CALCIUM
  13. COMBIGAN [Concomitant]
     Active Substance: BRIMONIDINE TARTRATE\TIMOLOL MALEATE
  14. ADALAT [Concomitant]
     Active Substance: NIFEDIPINE
  15. ACETAMINOPHEN. [Concomitant]
     Active Substance: ACETAMINOPHEN
     Route: 048
  16. METHYLPREDNISOLONE. [Concomitant]
     Active Substance: METHYLPREDNISOLONE
     Route: 042

REACTIONS (11)
  - Malignant hypertension [Unknown]
  - Anaphylactic reaction [Recovering/Resolving]
  - Angioedema [Recovering/Resolving]
  - Cataract [Unknown]
  - Hypertension [Unknown]
  - Blindness [Unknown]
  - Drug ineffective [Unknown]
  - Infusion related reaction [Recovering/Resolving]
  - Chorioretinopathy [Not Recovered/Not Resolved]
  - Transaminases increased [Unknown]
  - Therapy partial responder [Not Recovered/Not Resolved]

NARRATIVE: CASE EVENT DATE: 20180129
